FAERS Safety Report 5029561-9 (Version None)
Quarter: 2006Q2

REPORT INFORMATION
  Report Type: 
  Country: None (occurrence: None)
  Receive Date: 20060504
  Receipt Date: 20060107
  Transmission Date: 20061013
  Serious: No
  Sender: FDA-Public Use
  Company Number: 200512441BWH

PATIENT
  Age: 63 Year
  Sex: Male

DRUGS (10)
  1. LEVITRA [Suspect]
     Dosage: 20 MG, NI, ORAL
     Route: 048
  2. ASPIRIN [Concomitant]
  3. LISINOPRIL [Concomitant]
  4. ALLOPURINOL [Concomitant]
  5. SELENIUM E [Concomitant]
  6. MULTI-VITAMIN [Concomitant]
  7. WARFARIN SODIUM [Concomitant]
  8. SIMVASTATIN [Concomitant]
  9. VIAGRA [Concomitant]
  10. WATER PILL [Concomitant]

REACTIONS (1)
  - DRUG EFFECT DECREASED [None]
